FAERS Safety Report 18858356 (Version 2)
Quarter: 2021Q1

REPORT INFORMATION
  Report Type: Spontaneous
  Country: GB (occurrence: GB)
  Receive Date: 20210208
  Receipt Date: 20210315
  Transmission Date: 20210420
  Serious: Yes (Death, Life-Threatening, Hospitalization, Other)
  Sender: FDA-Public Use
  Company Number: GB-ACCORD-216425

PATIENT
  Age: 75 Year
  Sex: Female

DRUGS (14)
  1. BUDESONIDE. [Suspect]
     Active Substance: BUDESONIDE
     Indication: ASTHMA
     Dosage: UNK; ;
     Route: 055
  2. PROPOFOL. [Concomitant]
     Active Substance: PROPOFOL
     Indication: ANAESTHESIA
     Dosage: UNK; ;
     Route: 042
  3. ATORVASTATIN/ATORVASTATIN CALCIUM [Suspect]
     Active Substance: ATORVASTATIN CALCIUM
     Indication: HYPERCHOLESTEROLAEMIA
     Dates: start: 1999
  4. GLYCERYL TRINITRATE [Suspect]
     Active Substance: NITROGLYCERIN
     Indication: ANGINA PECTORIS
     Dosage: UNK; ;
     Route: 048
     Dates: start: 200203, end: 200203
  5. PANCURONIUM [Suspect]
     Active Substance: PANCURONIUM
     Indication: MUSCLE SPASMS
     Dates: start: 200203
  6. QUININE [Suspect]
     Active Substance: QUININE
     Indication: MUSCLE SPASMS
  7. DIPRIVAN [Concomitant]
     Active Substance: PROPOFOL
     Indication: ANAESTHESIA
     Dosage: UNK; ;
     Route: 042
  8. FENTANYL/FENTANYL CITRATE [Suspect]
     Active Substance: FENTANYL
     Indication: ANAESTHESIA
     Route: 042
     Dates: start: 200203, end: 200203
  9. DILTIAZEM. [Concomitant]
     Active Substance: DILTIAZEM
     Indication: HYPERTENSION
  10. ARAVA [Suspect]
     Active Substance: LEFLUNOMIDE
     Indication: RHEUMATOID ARTHRITIS
     Dosage: 20 MG;
     Dates: start: 200203, end: 200203
  11. CODEINE PHOSPHATE/PARACETAMOL [Suspect]
     Active Substance: ACETAMINOPHEN\CODEINE PHOSPHATE
     Indication: RHEUMATOID ARTHRITIS
  12. LISINOPRIL. [Suspect]
     Active Substance: LISINOPRIL
     Indication: HYPERTENSION
     Route: 048
     Dates: start: 200203
  13. MIDAZOLAM/MIDAZOLAM HYDROCHLORIDE/MIDAZOLAM MALEATE [Suspect]
     Active Substance: MIDAZOLAM HYDROCHLORIDE
     Indication: MUSCLE SPASMS
     Dates: start: 200203, end: 200203
  14. ACETYLSALICYLIC ACID [Suspect]
     Active Substance: ASPIRIN
     Indication: ANGINA PECTORIS
     Dates: start: 200203

REACTIONS (13)
  - Hypovolaemia [Fatal]
  - Hepatorenal syndrome [Fatal]
  - Ulcer [Fatal]
  - Hepatic ischaemia [Fatal]
  - Haemorrhage [Fatal]
  - Labile blood pressure [Fatal]
  - Renal failure [Fatal]
  - Haematemesis [Fatal]
  - Coagulopathy [Fatal]
  - Hepatocellular injury [Fatal]
  - Renal impairment [Fatal]
  - Muscle relaxant therapy [Fatal]
  - Hepatic failure [Fatal]
